FAERS Safety Report 18489184 (Version 2)
Quarter: 2020Q4

REPORT INFORMATION
  Report Type: Spontaneous
  Country: RU (occurrence: RU)
  Receive Date: 20201111
  Receipt Date: 20201201
  Transmission Date: 20210114
  Serious: Yes (Other)
  Sender: FDA-Public Use
  Company Number: RU-BAYER-2020-230085

PATIENT
  Age: 40 Year
  Sex: Female

DRUGS (1)
  1. MIRENA [Suspect]
     Active Substance: LEVONORGESTREL
     Dosage: 20 ?G PER DAY CONTINUOUSLY
     Route: 015
     Dates: start: 20200825, end: 202010

REACTIONS (4)
  - Ovarian cyst [Recovering/Resolving]
  - Ovarian rupture [Recovering/Resolving]
  - Ovarian rupture [Recovering/Resolving]
  - Cyst [Recovering/Resolving]

NARRATIVE: CASE EVENT DATE: 202009
